FAERS Safety Report 7073902-8 (Version None)
Quarter: 2010Q4

REPORT INFORMATION
  Report Type: 
  Country: None (occurrence: None)
  Receive Date: 20101029
  Receipt Date: 20101021
  Transmission Date: 20110411
  Serious: Yes (Disabling)
  Sender: FDA-Public Use
  Company Number: SE-ABBOTT-10P-150-0664531-00

PATIENT
  Sex: Female

DRUGS (5)
  1. HUMIRA [Suspect]
     Indication: RHEUMATOID ARTHRITIS
     Dates: start: 20080901, end: 20100201
  2. ENALAPRIL MALEATE [Concomitant]
     Indication: HYPERTENSION
  3. METOPROLOL TARTRATE [Concomitant]
     Indication: HYPERTENSION
  4. ORUDIS [Concomitant]
     Indication: ANTIINFLAMMATORY THERAPY
  5. DICLOFENAK [Concomitant]
     Indication: ANTIINFLAMMATORY THERAPY

REACTIONS (7)
  - ANXIETY [None]
  - ASTHENIA [None]
  - BLOOD CREATININE INCREASED [None]
  - CREATININE RENAL CLEARANCE DECREASED [None]
  - FATIGUE [None]
  - RENAL DISORDER [None]
  - RENAL IMPAIRMENT [None]
